FAERS Safety Report 10149104 (Version 4)
Quarter: 2014Q3

REPORT INFORMATION
  Report Type: Report from Study
  Country: US (occurrence: US)
  Receive Date: 20140502
  Receipt Date: 20140820
  Transmission Date: 20150326
  Serious: Yes (Hospitalization)
  Sender: FDA-Public Use
  Company Number: US-ROCHE-1181698

PATIENT
  Age: 37 Year
  Sex: Female
  Weight: 103.1 kg

DRUGS (16)
  1. NORCO [Concomitant]
     Active Substance: ACETAMINOPHEN\HYDROCODONE BITARTRATE
     Dosage: DOSE: 5-325MG
     Route: 065
     Dates: start: 20120208
  2. TRASTUZUMAB [Suspect]
     Active Substance: TRASTUZUMAB
     Indication: HER-2 POSITIVE BREAST CANCER
     Dosage: LOADING DOSE
     Route: 042
     Dates: start: 20130114
  3. MORPHINE [Concomitant]
     Active Substance: MORPHINE
  4. EMLA [Concomitant]
     Active Substance: LIDOCAINE\PRILOCAINE
     Route: 065
     Dates: start: 20120926
  5. DEXAMETHASONE. [Concomitant]
     Active Substance: DEXAMETHASONE
     Dosage: 12MG PRIOR TO CHEMO
     Route: 065
     Dates: start: 20121119
  6. EMEND [Concomitant]
     Active Substance: APREPITANT
     Dosage: PRIOR TO CHEMO
     Route: 065
     Dates: start: 20121119
  7. CYCLOBENZAPRINE [Concomitant]
     Active Substance: CYCLOBENZAPRINE
     Route: 065
     Dates: start: 20120208
  8. NEUPOGEN [Concomitant]
     Active Substance: FILGRASTIM
     Route: 065
  9. BACTRIM [Concomitant]
     Active Substance: SULFAMETHOXAZOLE\TRIMETHOPRIM
     Route: 065
     Dates: start: 20121226, end: 20130114
  10. TRASTUZUMAB [Suspect]
     Active Substance: TRASTUZUMAB
     Dosage: MAINTENANCE DOSE, DATE OF LAST DOSE PRIOR TO THE EVENT OF RASH MACULOPAPULAR: 04/FEB/2013
     Route: 042
  11. TYLENOL [Concomitant]
     Active Substance: ACETAMINOPHEN
     Route: 065
     Dates: start: 20121008
  12. SODIUM CHLORIDE. [Concomitant]
     Active Substance: SODIUM CHLORIDE
     Route: 065
  13. DOCETAXEL [Suspect]
     Active Substance: DOCETAXEL
     Indication: HER-2 POSITIVE BREAST CANCER
     Dosage: LAST DOSE PRIOR TO SAE ON 04/FEB/2013
     Route: 042
     Dates: start: 20130204
  14. ZOFRAN [Concomitant]
     Active Substance: ONDANSETRON HYDROCHLORIDE
     Dosage: PRIOR TO CHEMO, 8MG PRN
     Route: 065
     Dates: start: 20121119
  15. ZOFRAN [Concomitant]
     Active Substance: ONDANSETRON HYDROCHLORIDE
     Route: 065
     Dates: start: 20121119
  16. PERTUZUMAB [Suspect]
     Active Substance: PERTUZUMAB
     Indication: HER-2 POSITIVE BREAST CANCER
     Dosage: LOADING DOSE
     Route: 042
     Dates: start: 20130114

REACTIONS (2)
  - Rash maculo-papular [Recovering/Resolving]
  - Lung infection [Recovered/Resolved]

NARRATIVE: CASE EVENT DATE: 20130205
